FAERS Safety Report 5313815-2 (Version None)
Quarter: 2007Q2

REPORT INFORMATION
  Report Type: 
  Country: None (occurrence: None)
  Receive Date: 20070501
  Receipt Date: 20070416
  Transmission Date: 20071010
  Serious: Yes (Life-Threatening, Other)
  Sender: FDA-Public Use
  Company Number: JP-ROCHE-434743

PATIENT
  Age: 6 Year
  Sex: Female

DRUGS (6)
  1. TAMIFLU [Suspect]
     Indication: INFLUENZA
     Dosage: FORM: DRY SYRUP.
     Route: 048
     Dates: start: 20060124, end: 20060125
  2. ASVERIN [Concomitant]
     Route: 048
     Dates: start: 20060124, end: 20060130
  3. PERIACTIN [Concomitant]
     Route: 048
     Dates: start: 20060124, end: 20060130
  4. MUCODYNE [Concomitant]
     Route: 048
     Dates: start: 20060124, end: 20060130
  5. ANHIBA [Concomitant]
     Route: 054
  6. FLOMOX [Concomitant]
     Dosage: FORM: FINE GRANULE.
     Route: 048
     Dates: start: 20060126, end: 20060128

REACTIONS (2)
  - ABNORMAL BEHAVIOUR [None]
  - HALLUCINATION [None]
